FAERS Safety Report 7269975-X (Version None)
Quarter: 2011Q1

REPORT INFORMATION
  Report Type: 
  Country: None (occurrence: None)
  Receive Date: 20110202
  Receipt Date: 20110120
  Transmission Date: 20110831
  Serious: Yes (Death, Hospitalization)
  Sender: FDA-Public Use
  Company Number: US-ACTELION-A-NJ2011-44190

PATIENT

DRUGS (4)
  1. WARFARIN [Concomitant]
  2. LASIX [Concomitant]
  3. TRACLEER [Suspect]
     Indication: PULMONARY ARTERIAL HYPERTENSION
     Dosage: UNK
     Route: 048
     Dates: start: 20060605
  4. VENTAVIS [Suspect]
     Indication: PULMONARY ARTERIAL HYPERTENSION
     Dosage: UNK
     Route: 055
     Dates: start: 20080131

REACTIONS (5)
  - PULMONARY ARTERIAL HYPERTENSION [None]
  - CARDIAC FAILURE [None]
  - MECHANICAL VENTILATION [None]
  - PNEUMONIA [None]
  - CONDITION AGGRAVATED [None]
